FAERS Safety Report 5823438-4 (Version None)
Quarter: 2008Q3

REPORT INFORMATION
  Report Type: 
  Country: None (occurrence: None)
  Receive Date: 20080725
  Receipt Date: 20070724
  Transmission Date: 20090109
  Serious: No
  Sender: FDA-Public Use
  Company Number: US-ABBOTT-07P-163-0377232-00

PATIENT

DRUGS (2)
  1. RITONAVIR [Suspect]
     Indication: HIV INFECTION
  2. ATAZANAVIR [Suspect]
     Indication: HIV INFECTION

REACTIONS (1)
  - DRUG RESISTANCE [None]
